FAERS Safety Report 25904484 (Version 3)
Quarter: 2025Q4

REPORT INFORMATION
  Report Type: Spontaneous
  Country: JP (occurrence: JP)
  Receive Date: 20251010
  Receipt Date: 20251111
  Transmission Date: 20260117
  Serious: Yes (Hospitalization, Other)
  Sender: GLAXOSMITHKLINE
  Company Number: JP-GSK-JP2025127707

PATIENT
  Age: 10 Year
  Sex: Female
  Weight: 30 kg

DRUGS (13)
  1. FLUTICASONE FUROATE\VILANTEROL TRIFENATATE [Suspect]
     Active Substance: FLUTICASONE FUROATE\VILANTEROL TRIFENATATE
     Indication: Cough
     Dosage: UNK
  2. ASVERIN (TIPEPIDINE HIBENZATE) [Suspect]
     Active Substance: TIPEPIDINE HIBENZATE
     Indication: Cough
     Dosage: 1 DF, 1D
  3. ASVERIN (TIPEPIDINE HIBENZATE) [Suspect]
     Active Substance: TIPEPIDINE HIBENZATE
     Indication: Rhinorrhoea
  4. EPINASTINE [Suspect]
     Active Substance: EPINASTINE HYDROCHLORIDE
     Indication: Cough
     Dosage: 3 DF, QD
  5. EPINASTINE [Suspect]
     Active Substance: EPINASTINE HYDROCHLORIDE
     Indication: Rhinorrhoea
  6. EPINASTINE [Suspect]
     Active Substance: EPINASTINE HYDROCHLORIDE
     Indication: Conjunctivitis allergic
  7. EPINASTINE [Suspect]
     Active Substance: EPINASTINE HYDROCHLORIDE
     Indication: Rhinitis allergic
  8. CARBOCYSTEINE [Suspect]
     Active Substance: CARBOCYSTEINE
     Indication: Cough
     Dosage: 3 DF, QD
  9. CARBOCYSTEINE [Suspect]
     Active Substance: CARBOCYSTEINE
     Indication: Rhinorrhoea
  10. AMBROXOL [Suspect]
     Active Substance: AMBROXOL
     Indication: Cough
     Dosage: 3 DF, QD
  11. AMBROXOL [Suspect]
     Active Substance: AMBROXOL
     Indication: Rhinorrhoea
  12. SINGULAIR [Suspect]
     Active Substance: MONTELUKAST SODIUM
     Indication: Cough
     Dosage: 1 DF, 1D
  13. SINGULAIR [Suspect]
     Active Substance: MONTELUKAST SODIUM
     Indication: Rhinorrhoea

REACTIONS (5)
  - Drug-induced liver injury [Recovering/Resolving]
  - Stevens-Johnson syndrome [Recovering/Resolving]
  - Pyrexia [Recovering/Resolving]
  - Rash [Recovering/Resolving]
  - Faeces pale [Recovering/Resolving]

NARRATIVE: CASE EVENT DATE: 20251001
